FAERS Safety Report 5284303-7 (Version None)
Quarter: 2007Q2

REPORT INFORMATION
  Report Type: 
  Country: None (occurrence: None)
  Receive Date: 20070403
  Receipt Date: 20070322
  Transmission Date: 20071010
  Serious: Yes (Other)
  Sender: FDA-Public Use
  Company Number: PHBS2007BE05118

PATIENT
  Age: 71 Year
  Sex: Female

DRUGS (4)
  1. MIACALCIN [Suspect]
     Indication: COMPLEX REGIONAL PAIN SYNDROME
     Dosage: 50 IU DAILY
     Route: 058
     Dates: start: 20070307, end: 20070310
  2. MIACALCIN [Suspect]
     Dosage: 100 IU DAILY
     Route: 058
     Dates: start: 20070311
  3. SINTROM [Suspect]
     Indication: DEEP VEIN THROMBOSIS
     Dosage: 3 MG DAILY
     Dates: start: 19970101
  4. SINTROM [Suspect]
     Dosage: 2 MG, Q72H
     Dates: start: 20070301

REACTIONS (2)
  - DRUG INTERACTION [None]
  - INTERNATIONAL NORMALISED RATIO INCREASED [None]
